FAERS Safety Report 21706443 (Version 1)
Quarter: 2022Q4

REPORT INFORMATION
  Report Type: Spontaneous
  Country: US (occurrence: None)
  Receive Date: 20221208
  Receipt Date: 20221208
  Transmission Date: 20230113
  Serious: No
  Sender: FDA-Public Use
  Company Number: None

PATIENT
  Age: 83 Year
  Sex: Male
  Weight: 52.2 kg

DRUGS (1)
  1. STIOLTO RESPIMAT [Suspect]
     Active Substance: OLODATEROL HYDROCHLORIDE\TIOTROPIUM BROMIDE MONOHYDRATE
     Indication: Chronic obstructive pulmonary disease
     Dosage: OTHER QUANTITY : 60 INHALATION(S);?
     Route: 055
     Dates: start: 20210101

REACTIONS (2)
  - Urinary retention [None]
  - Dysuria [None]

NARRATIVE: CASE EVENT DATE: 20221101
